FAERS Safety Report 9672339 (Version 2)
Quarter: 2014Q1

REPORT INFORMATION
  Report Type: Spontaneous
  Country: IT (occurrence: IT)
  Receive Date: 20131106
  Receipt Date: 20140110
  Transmission Date: 20141002
  Serious: Yes (Life-Threatening)
  Sender: FDA-Public Use
  Company Number: IT-TEVA-440888ISR

PATIENT
  Age: 51 Year
  Sex: Female

DRUGS (4)
  1. FLUOROURACILE TEVA [Suspect]
     Indication: COLON CANCER METASTATIC
     Dosage: 720 MILLIGRAM DAILY;
     Route: 042
     Dates: start: 20131003, end: 20131017
  2. FLUOROURACILE TEVA [Interacting]
     Dosage: 4310 MILLIGRAM DAILY;
     Route: 041
     Dates: start: 20131003, end: 20131017
  3. AVASTIN (NOT TEVA^S PRODUCT) [Interacting]
     Indication: COLON CANCER METASTATIC
     Dosage: 390 MILLIGRAM DAILY; CONCENTRATE FOR SOLUTION FOR INFUSION
     Route: 042
     Dates: start: 20131003, end: 20131017
  4. ELOXATIN (NOT TEVA^S PRODUCT) [Suspect]
     Indication: COLON CANCER METASTATIC
     Dosage: 150 MILLIGRAM DAILY;
     Route: 042
     Dates: start: 20131003, end: 20131017

REACTIONS (5)
  - Dyspnoea [Recovered/Resolved]
  - Nausea [Recovered/Resolved]
  - Erythema [Recovered/Resolved]
  - Erythema [Recovered/Resolved]
  - Drug interaction [Recovered/Resolved]
